FAERS Safety Report 9003251 (Version 2)
Quarter: 2013Q1

REPORT INFORMATION
  Report Type: Report from Study
  Country: CA (occurrence: CA)
  Receive Date: 20130108
  Receipt Date: 20130218
  Transmission Date: 20140127
  Serious: Yes (Hospitalization, Other)
  Sender: FDA-Public Use
  Company Number: CA-ABBOTT-12P-028-0948645-00

PATIENT
  Age: 77 Year
  Sex: Male

DRUGS (2)
  1. HUMIRA 40 MG/0.8 ML PEN [Suspect]
     Indication: CROHN^S DISEASE
     Route: 058
     Dates: start: 20100727, end: 20120605
  2. HUMIRA 40 MG/0.8 ML PEN [Suspect]
     Dates: end: 20130102

REACTIONS (8)
  - Prostate cancer [Unknown]
  - Blood urine present [Recovering/Resolving]
  - Dysuria [Recovering/Resolving]
  - Prostate infection [Recovering/Resolving]
  - Prostatomegaly [Recovering/Resolving]
  - Drug dose omission [Unknown]
  - Surgery [Unknown]
  - Heart rate decreased [Unknown]
